FAERS Safety Report 8793480 (Version 1)
Quarter: 2012Q4

REPORT INFORMATION
  Report Type: 
  Country: BR (occurrence: BR)
  Receive Date: 20120917
  Receipt Date: 20120917
  Transmission Date: 20130627
  Serious: Yes (Other)
  Sender: FDA-Public Use
  Company Number: BR-ASTRAZENECA-2012SE70166

PATIENT
  Age: 77 Year
  Sex: Female

DRUGS (2)
  1. SELOZOK [Suspect]
     Route: 048
     Dates: end: 201208
  2. SELOZOK [Suspect]
     Route: 048
     Dates: start: 201208, end: 20120904

REACTIONS (6)
  - Blood pressure increased [Recovered/Resolved]
  - Cerebral ischaemia [Recovered/Resolved]
  - Blood pressure decreased [Unknown]
  - Headache [Not Recovered/Not Resolved]
  - Off label use [Not Recovered/Not Resolved]
  - Drug dose omission [Not Recovered/Not Resolved]
